FAERS Safety Report 9318380 (Version 1)
Quarter: 2013Q2

REPORT INFORMATION
  Report Type: Spontaneous
  Country: US (occurrence: US)
  Receive Date: 20130530
  Receipt Date: 20130530
  Transmission Date: 20140414
  Serious: No
  Sender: FDA-Public Use
  Company Number: US-NOVEN-12US005746

PATIENT
  Age: 14 Year
  Sex: Female

DRUGS (3)
  1. DAYTRANA [Suspect]
     Indication: ATTENTION DEFICIT/HYPERACTIVITY DISORDER
     Dosage: 20 MG, QD
     Route: 062
     Dates: start: 201210, end: 201211
  2. DAYTRANA [Suspect]
     Dosage: 30 MG, QD
     Route: 062
     Dates: start: 201211, end: 201211
  3. DAYTRANA [Suspect]
     Dosage: 40 MG, QD
     Route: 062
     Dates: start: 201211

REACTIONS (6)
  - Feeling abnormal [Not Recovered/Not Resolved]
  - Cardiac flutter [Not Recovered/Not Resolved]
  - Dizziness [Not Recovered/Not Resolved]
  - Nervousness [Not Recovered/Not Resolved]
  - Wrong technique in drug usage process [Not Recovered/Not Resolved]
  - Drug prescribing error [Not Recovered/Not Resolved]
